FAERS Safety Report 8905165 (Version 2)
Quarter: 2012Q4

REPORT INFORMATION
  Report Type: 
  Country: SG (occurrence: SG)
  Receive Date: 20121113
  Receipt Date: 20121127
  Transmission Date: 20130627
  Serious: Yes (Other)
  Sender: FDA-Public Use
  Company Number: SG-MERCK-1211SGP004742

PATIENT
  Age: 26 Year
  Sex: Female

DRUGS (3)
  1. SAPHRIS [Suspect]
     Dosage: 5 mg, qd
     Route: 048
  2. FLUOXETINE [Concomitant]
     Indication: DEPRESSION
     Dosage: 20 mg, qd
     Route: 048
     Dates: start: 20120224
  3. SOLIAN [Concomitant]
     Indication: SCHIZOPHRENIA, PARANOID TYPE
     Dosage: 100 mg, qd
     Route: 048
     Dates: start: 20120224

REACTIONS (8)
  - Suicidal ideation [Recovered/Resolved]
  - Restlessness [Recovered/Resolved]
  - Agitation [Recovered/Resolved]
  - Akathisia [Recovered/Resolved]
  - Homicidal ideation [Recovered/Resolved]
  - Hallucination, auditory [None]
  - Insomnia [None]
  - Depression [None]
